FAERS Safety Report 9654377 (Version 2)
Quarter: 2013Q4

REPORT INFORMATION
  Report Type: Spontaneous
  Country: US (occurrence: US)
  Receive Date: 20131029
  Receipt Date: 20131029
  Transmission Date: 20140711
  Serious: Yes (Hospitalization, Other)
  Sender: FDA-Public Use
  Company Number: US-009507513-2009SP025221

PATIENT
  Sex: Female
  Weight: 113.4 kg

DRUGS (4)
  1. NUVARING [Suspect]
     Indication: CONTRACEPTION
     Dates: start: 20070814, end: 20070920
  2. MINERALS (UNSPECIFIED) (+) VITAMINS (UNSPECIFIED) [Concomitant]
     Dosage: COMPLETE
  3. EXCEDRIN (ACETAMINOPHEN (+) ASPIRIN (+) CAFFEINE) [Concomitant]
     Indication: HEADACHE
     Dosage: ONCE OR TWICE PER WEEK
  4. TYLENOL EXTRA STRENGTH [Concomitant]
     Indication: HEADACHE
     Dosage: ONCE OR TWICE PER WEEK HEADACHES

REACTIONS (7)
  - Pulmonary embolism [Unknown]
  - Thrombophlebitis [Unknown]
  - Thrombosis [Unknown]
  - Pleuritic pain [Unknown]
  - Supraventricular extrasystoles [Unknown]
  - Bradycardia [Unknown]
  - Headache [Unknown]
